FAERS Safety Report 15904156 (Version 2)
Quarter: 2019Q3

REPORT INFORMATION
  Report Type: Spontaneous
  Country: CA (occurrence: CA)
  Receive Date: 20190204
  Receipt Date: 20190813
  Transmission Date: 20191004
  Serious: Yes (Other)
  Sender: FDA-Public Use
  Company Number: CA-TEVA-2019-CA-1007377

PATIENT
  Age: 60 Year
  Sex: Male
  Weight: 117 kg

DRUGS (15)
  1. ATORVASTATIN [Concomitant]
     Active Substance: ATORVASTATIN
  2. VENTOLIN [Concomitant]
     Active Substance: ALBUTEROL SULFATE
  3. INDAPAMIDE. [Suspect]
     Active Substance: INDAPAMIDE
     Dosage: 2.5 MILLIGRAM DAILY;
     Route: 048
  4. FLOVENT [Concomitant]
     Active Substance: FLUTICASONE PROPIONATE
  5. PANTOPRAZOLE [Concomitant]
     Active Substance: PANTOPRAZOLE
  6. CYTOVENE IV [Concomitant]
     Active Substance: GANCICLOVIR SODIUM
  7. VIT B12 1,000 MCG [Concomitant]
  8. PERINDOPRIL [Suspect]
     Active Substance: PERINDOPRIL
     Dosage: 8 MILLIGRAM DAILY;
     Route: 048
  9. PIPERACILLIN SODIUM/TAZOBACTAM SODIUM POWDER FOR INJECTION [Suspect]
     Active Substance: PIPERACILLIN SODIUM\TAZOBACTAM SODIUM
     Indication: PLEURAL EFFUSION
  10. ASPIRIN. [Concomitant]
     Active Substance: ASPIRIN
  11. CHAMPIX [Concomitant]
     Active Substance: VARENICLINE TARTRATE
  12. GANCICLOVIR. [Concomitant]
     Active Substance: GANCICLOVIR
  13. AMLODIPINE [Concomitant]
     Active Substance: AMLODIPINE BESYLATE
  14. SENNA [Concomitant]
     Active Substance: SENNA LEAF\SENNOSIDES\SENNOSIDES A AND B
  15. TESTOSTERONE. [Concomitant]
     Active Substance: TESTOSTERONE

REACTIONS (2)
  - Swollen tongue [Recovered/Resolved]
  - Angioedema [Recovered/Resolved]
